FAERS Safety Report 8784780 (Version 1)
Quarter: 2012Q4

REPORT INFORMATION
  Report Type: 
  Country: CN (occurrence: CN)
  Receive Date: 20120914
  Receipt Date: 20120914
  Transmission Date: 20130627
  Serious: Yes (Other)
  Sender: FDA-Public Use
  Company Number: CN-BRISTOL-MYERS SQUIBB COMPANY-16933038

PATIENT
  Age: 69 Year
  Sex: Female
  Weight: 55 kg

DRUGS (10)
  1. APROVEL TABS 150 MG [Suspect]
     Indication: HYPERTENSION
     Route: 048
     Dates: start: 20100901, end: 20100921
  2. BETALOC [Suspect]
     Indication: ISCHAEMIA
     Dosage: Sustained release tablet
     Route: 048
  3. PLAVIX [Suspect]
     Indication: PLATELET AGGREGATION
     Dosage: 75mg
     Route: 048
  4. PLAVIX [Suspect]
     Indication: COAGULOPATHY
     Dosage: 75mg
     Route: 048
  5. ASPIRIN [Suspect]
     Indication: PLATELET AGGREGATION
     Dosage: 100mg/day on following day
     Route: 048
  6. ASPIRIN [Suspect]
     Indication: COAGULOPATHY
     Dosage: 100mg/day on following day
     Route: 048
  7. CLEXANE [Suspect]
     Indication: PLATELET AGGREGATION
     Dosage: injection
  8. CLEXANE [Suspect]
     Indication: COAGULOPATHY
     Dosage: injection
  9. HYDROCHLOROTHIAZIDE [Suspect]
  10. ISOSORBIDE DINITRATE [Suspect]
     Indication: ANGINA PECTORIS
     Route: 048

REACTIONS (2)
  - Thrombocytopenia [Recovering/Resolving]
  - Erythropenia [Recovering/Resolving]
